FAERS Safety Report 21365661 (Version 1)
Quarter: 2022Q3

REPORT INFORMATION
  Report Type: Spontaneous
  Country: ES (occurrence: ES)
  Receive Date: 20220922
  Receipt Date: 20220922
  Transmission Date: 20221027
  Serious: Yes (Other)
  Sender: FDA-Public Use
  Company Number: None

PATIENT
  Age: 70 Year
  Sex: Female
  Weight: 70 kg

DRUGS (2)
  1. RISPERIDONE [Interacting]
     Active Substance: RISPERIDONE
     Indication: Behaviour disorder
     Dosage: 1 BREAKFAST,1 LUNCH, 1 BEDTIME, 56 TABLETS
     Route: 048
     Dates: start: 20220530, end: 20220721
  2. QUETIAPINE [Interacting]
     Active Substance: QUETIAPINE
     Indication: Behaviour disorder
     Dosage: 1 BREAKFAST, 1 DINNER, 60 TABLETS
     Route: 048
     Dates: start: 20220614, end: 20220721

REACTIONS (2)
  - Urinary retention [Recovered/Resolved]
  - Drug interaction [Unknown]

NARRATIVE: CASE EVENT DATE: 20220721
